FAERS Safety Report 13268725 (Version 1)
Quarter: 2017Q1

REPORT INFORMATION
  Report Type: Spontaneous
  Country: US (occurrence: US)
  Receive Date: 20170224
  Receipt Date: 20170224
  Transmission Date: 20170428
  Serious: Yes (Hospitalization)
  Sender: FDA-Public Use
  Company Number: None

PATIENT
  Age: 56 Year
  Sex: Female
  Weight: 157.5 kg

DRUGS (7)
  1. AMIODARONE 200MG TABLETS [Suspect]
     Active Substance: AMIODARONE
     Indication: ATRIAL FIBRILLATION
     Dosage: ?          QUANTITY:2 TABLET(S);?
     Route: 048
     Dates: start: 20161121, end: 20161126
  2. BARIATRIC VITAMINS [Concomitant]
  3. ESOMEPRAZOLE [Concomitant]
     Active Substance: ESOMEPRAZOLE
  4. CALCIUM [Concomitant]
     Active Substance: CALCIUM
  5. XARELTO [Concomitant]
     Active Substance: RIVAROXABAN
  6. PROZAC [Concomitant]
     Active Substance: FLUOXETINE HYDROCHLORIDE
  7. DILTIAZEM. [Concomitant]
     Active Substance: DILTIAZEM

REACTIONS (7)
  - Asthenia [None]
  - Drug-induced liver injury [None]
  - Blood pressure decreased [None]
  - Pyrexia [None]
  - Toxicity to various agents [None]
  - Dehydration [None]
  - Chills [None]

NARRATIVE: CASE EVENT DATE: 20161125
